FAERS Safety Report 5919285-5 (Version None)
Quarter: 2008Q4

REPORT INFORMATION
  Report Type: 
  Country: None (occurrence: None)
  Receive Date: 20081015
  Receipt Date: 20081006
  Transmission Date: 20090506
  Serious: Yes (Hospitalization)
  Sender: FDA-Public Use
  Company Number: PHHO2008BR09421

PATIENT
  Sex: Male
  Weight: 68.9 kg

DRUGS (3)
  1. TEGRETOL [Suspect]
     Indication: CONVULSION
     Dosage: 400 MG, BID
     Route: 048
     Dates: start: 19940601, end: 20080416
  2. CYCLOSPORINE [Interacting]
  3. RAD 666 RAD+TAB+PTR [Suspect]
     Indication: RENAL TRANSPLANT
     Dosage: 2 MG, DAILY
     Route: 048
     Dates: start: 20070704

REACTIONS (4)
  - CONVULSION [None]
  - DRUG INTERACTION [None]
  - HYPOMAGNESAEMIA [None]
  - HYPONATRAEMIA [None]
